FAERS Safety Report 7153995-X (Version None)
Quarter: 2010Q4

REPORT INFORMATION
  Report Type: 
  Country: None (occurrence: None)
  Receive Date: 20101124
  Receipt Date: 20101110
  Transmission Date: 20110411
  Serious: Yes (Other)
  Sender: FDA-Public Use
  Company Number: 2010005031

PATIENT
  Age: 83 Year
  Sex: Female
  Weight: 46.6 kg

DRUGS (2)
  1. ERLOTINIB HYDROCHLORIDE [Suspect]
     Indication: LUNG ADENOCARCINOMA
     Dosage: (50 MG,50 IN 1 D),ORAL
     Route: 048
     Dates: start: 20090717, end: 20100228
  2. OXYCONTIN [Concomitant]

REACTIONS (8)
  - ANGINA PECTORIS [None]
  - CARDIAC FAILURE ACUTE [None]
  - CONSTIPATION [None]
  - DIARRHOEA [None]
  - GASTRITIS [None]
  - MALIGNANT NEOPLASM PROGRESSION [None]
  - NAUSEA [None]
  - NON-SMALL CELL LUNG CANCER METASTATIC [None]
